FAERS Safety Report 10174811 (Version 1)
Quarter: 2014Q2

REPORT INFORMATION
  Report Type: Report from Study
  Country: BR (occurrence: BR)
  Receive Date: 20140515
  Receipt Date: 20140515
  Transmission Date: 20141212
  Serious: Yes (Disabling)
  Sender: FDA-Public Use
  Company Number: BR-BAYER-2014-067135

PATIENT
  Age: 29 Year
  Sex: Female

DRUGS (4)
  1. BETAFERON [Suspect]
     Indication: MULTIPLE SCLEROSIS
     Dosage: 1 ML, QOD
     Route: 058
     Dates: start: 2012
  2. AZATHIOPRINE [Concomitant]
     Indication: ASTHENIA
     Dosage: 50 MG, BID
     Route: 048
     Dates: start: 2012
  3. PROPRANOLOL [Concomitant]
     Indication: ASTHENIA
     Dosage: 20 MG, BID
     Route: 048
     Dates: start: 2010
  4. PROPRANOLOL [Concomitant]
     Indication: HEART RATE INCREASED

REACTIONS (7)
  - Abasia [Recovered/Resolved]
  - Fatigue [Not Recovered/Not Resolved]
  - Gait disturbance [Not Recovered/Not Resolved]
  - Muscle twitching [Not Recovered/Not Resolved]
  - Musculoskeletal stiffness [Recovered/Resolved]
  - Pre-existing condition improved [Not Recovered/Not Resolved]
  - Pre-existing condition improved [Not Recovered/Not Resolved]
